FAERS Safety Report 9456496 (Version 1)
Quarter: 2013Q3

REPORT INFORMATION
  Report Type: Spontaneous
  Country: US (occurrence: US)
  Receive Date: 20130813
  Receipt Date: 20130813
  Transmission Date: 20140515
  Serious: No
  Sender: FDA-Public Use
  Company Number: US-009507513-1308USA005715

PATIENT
  Sex: Female

DRUGS (1)
  1. COPPERTONE ULTRAGUARD LOTION SPF 50 [Suspect]
     Indication: PRODUCT USED FOR UNKNOWN INDICATION
     Dosage: UNK, UNKNOWN
     Route: 061
     Dates: start: 201307

REACTIONS (7)
  - Rash generalised [Not Recovered/Not Resolved]
  - Urticaria [Not Recovered/Not Resolved]
  - Rash erythematous [Not Recovered/Not Resolved]
  - Rash papular [Not Recovered/Not Resolved]
  - Skin burning sensation [Unknown]
  - Skin disorder [Not Recovered/Not Resolved]
  - Hypersensitivity [Unknown]
